FAERS Safety Report 10254643 (Version 1)
Quarter: 2014Q2

REPORT INFORMATION
  Report Type: Spontaneous
  Country: CA (occurrence: CA)
  Receive Date: 20140624
  Receipt Date: 20140624
  Transmission Date: 20141212
  Serious: Yes (Hospitalization, Other)
  Sender: FDA-Public Use
  Company Number: CA-TEVA-489419USA

PATIENT
  Age: 15 Year
  Sex: Female
  Weight: 63 kg

DRUGS (4)
  1. INDOMETACIN [Suspect]
     Indication: PRODUCT USED FOR UNKNOWN INDICATION
     Dosage: 25 MILLIGRAM DAILY;
     Route: 048
  2. KINERET [Suspect]
     Dosage: 100 MILLIGRAM DAILY;
     Route: 058
  3. NORTRIPTYLINE [Concomitant]
  4. OMEPRAZOLE [Concomitant]

REACTIONS (1)
  - Coeliac disease [Recovered/Resolved with Sequelae]
